FAERS Safety Report 15073627 (Version 2)
Quarter: 2018Q3

REPORT INFORMATION
  Report Type: Spontaneous
  Country: CH (occurrence: CH)
  Receive Date: 20180627
  Receipt Date: 20180703
  Transmission Date: 20181010
  Serious: Yes (Other)
  Sender: FDA-Public Use
  Company Number: CH-MERCK KGAA-2050028

PATIENT
  Age: 8 Month
  Sex: Female
  Weight: .86 kg

DRUGS (8)
  1. NOVOTHYROX [Suspect]
     Active Substance: LEVOTHYROXINE SODIUM
     Indication: AUTOIMMUNE THYROIDITIS
  2. CORGARD [Suspect]
     Active Substance: NADOLOL
  3. ISOPHANE INSULIN [Suspect]
     Active Substance: INSULIN NOS
  4. ISONIAZIDE [Suspect]
     Active Substance: ISONIAZID
  5. NEXIUM [Suspect]
     Active Substance: ESOMEPRAZOLE MAGNESIUM
  6. URSOFALK [Suspect]
     Active Substance: URSODIOL
  7. NOVORAPID [Suspect]
     Active Substance: INSULIN ASPART
  8. FERINJECT [Suspect]
     Active Substance: FERRIC CARBOXYMALTOSE

REACTIONS (6)
  - Bradypnoea [Recovered/Resolved]
  - Premature baby [Recovered/Resolved]
  - Intraventricular haemorrhage neonatal [Unknown]
  - Neonatal respiratory distress syndrome [Recovered/Resolved]
  - Hyperbilirubinaemia neonatal [Recovered/Resolved]
  - Exposure during pregnancy [Recovered/Resolved]

NARRATIVE: CASE EVENT DATE: 20170826
